FAERS Safety Report 21298271 (Version 2)
Quarter: 2022Q4

REPORT INFORMATION
  Report Type: Report from Study
  Country: CA (occurrence: CA)
  Receive Date: 20220906
  Receipt Date: 20221023
  Transmission Date: 20230113
  Serious: Yes (Hospitalization)
  Sender: FDA-Public Use
  Company Number: CA-NOVARTISPH-NVSC2022CA198966

PATIENT
  Sex: Female

DRUGS (1)
  1. HYRIMOZ [Suspect]
     Active Substance: ADALIMUMAB-ADAZ
     Indication: Rheumatoid arthritis
     Dosage: 40 MG (PRE-FILLED PEN)
     Route: 058
     Dates: start: 20220512

REACTIONS (3)
  - Neoplasm malignant [Unknown]
  - Mass [Unknown]
  - Product dose omission issue [Unknown]
